FAERS Safety Report 8132515-7 (Version None)
Quarter: 2012Q1

REPORT INFORMATION
  Report Type: 
  Country: None (occurrence: None)
  Receive Date: 20120208
  Receipt Date: 20120124
  Transmission Date: 20120608
  Serious: Yes (Other)
  Sender: FDA-Public Use
  Company Number: 2012BN000042

PATIENT
  Age: 27 Month
  Sex: Male

DRUGS (6)
  1. MELPHALAN HYDROCHLORIDE [Suspect]
     Indication: RETINOBLASTOMA
     Dosage: 5 MG;IART
     Route: 013
  2. ANESTHETICS, GENERAL [Concomitant]
  3. VINCRISTINE [Concomitant]
  4. ETOPOSIDE [Concomitant]
  5. CARBOPLATIN [Concomitant]
  6. HEPARIN [Concomitant]

REACTIONS (1)
  - VITREOUS HAEMORRHAGE [None]
